FAERS Safety Report 9872313 (Version 1)
Quarter: 2014Q1

REPORT INFORMATION
  Report Type: Spontaneous
  Country: FR (occurrence: FR)
  Receive Date: 20140205
  Receipt Date: 20140205
  Transmission Date: 20141002
  Serious: Yes (Hospitalization)
  Sender: FDA-Public Use
  Company Number: FR-PFIZER INC-2014029025

PATIENT
  Age: 77 Year
  Sex: Female

DRUGS (9)
  1. REVATIO [Suspect]
     Indication: PULMONARY HYPERTENSION
     Dosage: 20 MG, 3X/DAY
     Route: 048
     Dates: start: 201106, end: 20140114
  2. REVATIO [Suspect]
     Indication: SCLERODERMA
  3. LASILIX [Concomitant]
     Dosage: 40 MG, 3X/DAY
     Route: 048
  4. TEMERIT [Concomitant]
     Dosage: 5 MG, 1X/DAY
     Route: 048
  5. INEXIUM /01479302/ [Concomitant]
     Dosage: 40 MG, 1X/DAY
     Route: 048
  6. DELURSAN [Concomitant]
     Dosage: 250 MG, 2X/DAY
     Route: 048
  7. CACIT D3 [Concomitant]
     Route: 048
  8. LERCAN [Concomitant]
     Dosage: 20 MG, 1X/DAY
     Route: 048
  9. LEXOMIL ROCHE [Concomitant]
     Dosage: 6 MG, 1X/DAY
     Route: 048

REACTIONS (6)
  - Gastrointestinal haemorrhage [Not Recovered/Not Resolved]
  - Epistaxis [Unknown]
  - Asthenia [Unknown]
  - Anaemia [Unknown]
  - Diarrhoea [Unknown]
  - Off label use [Unknown]
